FAERS Safety Report 9701323 (Version 1)
Quarter: 2013Q4

REPORT INFORMATION
  Report Type: Spontaneous
  Country: US (occurrence: US)
  Receive Date: 20131121
  Receipt Date: 20131121
  Transmission Date: 20140711
  Serious: No
  Sender: FDA-Public Use
  Company Number: US-GILEAD-2008-0016511

PATIENT
  Sex: Male
  Weight: 61.23 kg

DRUGS (10)
  1. LETAIRIS [Suspect]
     Indication: PULMONARY ARTERIAL HYPERTENSION
     Route: 048
     Dates: start: 20080228
  2. AUGMENTIN [Concomitant]
     Route: 048
  3. CYMBALTA [Concomitant]
     Route: 048
  4. JANUVIA [Concomitant]
     Route: 048
  5. PREDNISONE [Concomitant]
     Route: 048
  6. REVATIO [Concomitant]
     Route: 048
  7. CALCIUM [Concomitant]
     Route: 048
  8. ACTOS [Concomitant]
     Route: 048
  9. MUCINEX [Concomitant]
     Route: 048
  10. POTASSIUM CHLORIDE [Concomitant]
     Route: 048

REACTIONS (3)
  - Contusion [Unknown]
  - Asthenia [Unknown]
  - Fatigue [Unknown]
